FAERS Safety Report 12249442 (Version 2)
Quarter: 2016Q2

REPORT INFORMATION
  Report Type: Spontaneous
  Country: US (occurrence: US)
  Receive Date: 20160408
  Receipt Date: 20160523
  Transmission Date: 20160815
  Serious: Yes (Hospitalization, Other)
  Sender: FDA-Public Use
  Company Number: US-PFIZER INC-2016199937

PATIENT
  Age: 52 Year
  Sex: Male

DRUGS (1)
  1. DEPO-TESTOSTERONE [Suspect]
     Active Substance: TESTOSTERONE CYPIONATE
     Indication: HORMONE REPLACEMENT THERAPY
     Dosage: UNK, AS PRESCRIBED
     Dates: start: 201206, end: 201309

REACTIONS (7)
  - Immune system disorder [Unknown]
  - Viral infection [Unknown]
  - Spleen disorder [Unknown]
  - Deep vein thrombosis [Unknown]
  - Thrombophlebitis superficial [Unknown]
  - Nasopharyngitis [Unknown]
  - Thrombosis [Unknown]

NARRATIVE: CASE EVENT DATE: 2012
